FAERS Safety Report 12412152 (Version 2)
Quarter: 2016Q3

REPORT INFORMATION
  Report Type: Spontaneous
  Country: US (occurrence: US)
  Receive Date: 20160527
  Receipt Date: 20160711
  Transmission Date: 20161109
  Serious: Yes (Disabling, Other)
  Sender: FDA-Public Use
  Company Number: US-REGENERON PHARMACEUTICALS, INC.-2016-17591

PATIENT

DRUGS (2)
  1. EYLEA [Suspect]
     Active Substance: AFLIBERCEPT
     Indication: RETINAL VEIN OCCLUSION
     Dosage: 2 MG, 0.05 ML, APPROXIMATELY EVERY 6 WEEKS, OD
     Route: 031
     Dates: start: 20150922
  2. EYLEA [Suspect]
     Active Substance: AFLIBERCEPT
     Indication: MACULAR DEGENERATION
     Dosage: 2 MG MILLIGRAM(S), 0.05 ML, APPROXIMATELY EVERY 6 WEEKS, OD
     Route: 031
     Dates: start: 20160512, end: 20160512

REACTIONS (5)
  - Vitrectomy [Unknown]
  - Intraocular pressure increased [Unknown]
  - Staphylococcal infection [Not Recovered/Not Resolved]
  - Blindness unilateral [Not Recovered/Not Resolved]
  - Endophthalmitis [Not Recovered/Not Resolved]

NARRATIVE: CASE EVENT DATE: 20160514
